FAERS Safety Report 8882636 (Version 1)
Quarter: 2012Q4

REPORT INFORMATION
  Report Type: 
  Country: CA (occurrence: CA)
  Receive Date: 20121104
  Receipt Date: 20121104
  Transmission Date: 20130627
  Serious: Yes (Hospitalization, Other)
  Sender: FDA-Public Use
  Company Number: PHHO2005CA16179

PATIENT
  Sex: Female

DRUGS (8)
  1. SANDOSTATIN LAR (PATIENT BASIS) [Suspect]
     Indication: ACROMEGALY
     Dosage: 30mg every 3 weeks
     Dates: start: 19921001
  2. SANDOSTATIN LAR (PATIENT BASIS) [Suspect]
     Dosage: 30mg Q4 weeks
     Dates: start: 20051115
  3. AVAPRO [Concomitant]
  4. CARDIZEM [Concomitant]
  5. CELEBREX [Concomitant]
  6. INDAPAMIDE [Concomitant]
     Dosage: 1.25 mg, UNK
  7. TYLENOL W/CODEINE NO. 3 [Concomitant]
  8. VENTOLIN [Concomitant]

REACTIONS (24)
  - Dry skin [Unknown]
  - Pruritus [Unknown]
  - Neoplasm malignant [Unknown]
  - Hypophagia [Unknown]
  - Weight decreased [Not Recovered/Not Resolved]
  - Dehydration [Unknown]
  - Dyspnoea [Unknown]
  - Haemoglobin decreased [Unknown]
  - Vomiting [Unknown]
  - Nausea [Unknown]
  - Neoplasm recurrence [Unknown]
  - Pain [Unknown]
  - Flushing [Unknown]
  - Hot flush [Unknown]
  - Anxiety [Unknown]
  - Injection site swelling [Recovering/Resolving]
  - Blood pressure decreased [Unknown]
  - Mass [Recovering/Resolving]
  - Injection site warmth [Recovering/Resolving]
  - Headache [Unknown]
  - Asthenia [Unknown]
  - Hyperglycaemia [Unknown]
  - Diarrhoea [Unknown]
  - Injection site pain [Recovering/Resolving]
